FAERS Safety Report 14267069 (Version 1)
Quarter: 2017Q4

REPORT INFORMATION
  Report Type: Spontaneous
  Country: US (occurrence: US)
  Receive Date: 20171211
  Receipt Date: 20171211
  Transmission Date: 20180321
  Serious: No
  Sender: FDA-Public Use
  Company Number: US-PFIZER INC-2017522607

PATIENT
  Age: 57 Year
  Sex: Female
  Weight: 113.4 kg

DRUGS (3)
  1. ATROPINE SULFATE/DIPHENOXYLATE HYDROCHLORIDE [Suspect]
     Active Substance: ATROPINE SULFATE\DIPHENOXYLATE HYDROCHLORIDE
     Indication: DIARRHOEA
     Dosage: UNK UNK, AS NEEDED (2.5-0MG, TABLET, TWICE DAILY AS NEEDED)
     Route: 048
  2. XANAX [Concomitant]
     Active Substance: ALPRAZOLAM
     Dosage: UNK
  3. LORTAB [Concomitant]
     Active Substance: ACETAMINOPHEN\HYDROCODONE BITARTRATE
     Dosage: UNK

REACTIONS (5)
  - Memory impairment [Unknown]
  - Visual impairment [Unknown]
  - Drug ineffective [Unknown]
  - Product use issue [Unknown]
  - Diarrhoea [None]

NARRATIVE: CASE EVENT DATE: 201709
